FAERS Safety Report 24069143 (Version 1)
Quarter: 2024Q3

REPORT INFORMATION
  Report Type: Report from Study
  Country: US (occurrence: US)
  Receive Date: 20240710
  Receipt Date: 20240710
  Transmission Date: 20241017
  Serious: No
  Sender: ROCHE
  Company Number: US-ROCHE-3566435

PATIENT
  Age: 80 Year
  Sex: Male

DRUGS (6)
  1. VABYSMO [Suspect]
     Active Substance: FARICIMAB\FARICIMAB-SVOA
     Indication: Neovascular age-related macular degeneration
     Dosage: BOTH EYES
     Route: 031
  2. VABYSMO [Suspect]
     Active Substance: FARICIMAB\FARICIMAB-SVOA
     Indication: Choroidal neovascularisation
     Dosage: LEFT EYE ONLY
     Route: 031
  3. ATORVASTATIN [Concomitant]
     Active Substance: ATORVASTATIN
     Dosage: 40 MG ONCE DAILY ORAL TABLET
  4. XARELTO [Concomitant]
     Active Substance: RIVAROXABAN
     Dosage: 20 MG ONCE DAILY ORAL TABLET
  5. OXYBUTYNIN [Concomitant]
     Active Substance: OXYBUTYNIN\OXYBUTYNIN CHLORIDE
     Dosage: 10 MG ONCE DAILY ORAL TABLET
  6. METOPROLOL [Concomitant]
     Active Substance: METOPROLOL
     Indication: Atrial fibrillation
     Dosage: ONCE DAILY ORAL TABLET

REACTIONS (2)
  - Visual impairment [Not Recovered/Not Resolved]
  - Vision blurred [Not Recovered/Not Resolved]

NARRATIVE: CASE EVENT DATE: 20240517
